FAERS Safety Report 4436984-5 (Version None)
Quarter: 2004Q3

REPORT INFORMATION
  Report Type: 
  Country: None (occurrence: None)
  Receive Date: 20040830
  Receipt Date: 20040323
  Transmission Date: 20050211
  Serious: No
  Sender: FDA-Public Use
  Company Number: US-GLAXOSMITHKLINE-A0504086A

PATIENT
  Sex: Female

DRUGS (1)
  1. BECONASE [Suspect]
     Indication: ILL-DEFINED DISORDER
     Route: 055

REACTIONS (2)
  - DRUG HYPERSENSITIVITY [None]
  - SNEEZING [None]
